FAERS Safety Report 10625812 (Version 1)
Quarter: 2014Q4

REPORT INFORMATION
  Report Type: Spontaneous
  Country: None (occurrence: None)
  Receive Date: 20141203
  Receipt Date: 20141203
  Transmission Date: 20150529
  Serious: No
  Sender: FDA-Public Use
  Company Number: ALL1-2008-01493

PATIENT
  Sex: Male

DRUGS (1)
  1. DAYTRANA [Suspect]
     Active Substance: METHYLPHENIDATE
     Indication: ATTENTION DEFICIT/HYPERACTIVITY DISORDER
     Dosage: 20 MG, 1X/DAY:QD, TRANSDERMAL
     Dates: start: 2008, end: 200805

REACTIONS (1)
  - Application site discolouration [None]

NARRATIVE: CASE EVENT DATE: 2008
